FAERS Safety Report 15498147 (Version 4)
Quarter: 2018Q4

REPORT INFORMATION
  Report Type: Spontaneous
  Country: US (occurrence: US)
  Receive Date: 20181015
  Receipt Date: 20181226
  Transmission Date: 20190205
  Serious: No
  Sender: FDA-Public Use
  Company Number: US-PFIZER INC-2018414805

PATIENT
  Age: 70 Year
  Sex: Female
  Weight: 90 kg

DRUGS (5)
  1. ATENOLOL. [Concomitant]
     Active Substance: ATENOLOL
     Dosage: UNK
  2. ADVIL [IBUPROFEN] [Concomitant]
     Active Substance: IBUPROFEN
     Dosage: UNK, AS NEEDED
  3. SUTENT [Suspect]
     Active Substance: SUNITINIB MALATE
     Dosage: 37.5 MG, ALTERNATE DAY(EVERY OTHER DAY)
     Dates: start: 20181017
  4. SUTENT [Suspect]
     Active Substance: SUNITINIB MALATE
     Indication: SARCOMA
     Dosage: 37.5 MG, DAILY
     Dates: start: 20180920
  5. HYDROCHLOROTHIAZIDE. [Concomitant]
     Active Substance: HYDROCHLOROTHIAZIDE
     Dosage: UNK

REACTIONS (7)
  - Product use in unapproved indication [Unknown]
  - Fatigue [Recovered/Resolved]
  - Rash [Recovered/Resolved]
  - Dysgeusia [Unknown]
  - Feeding disorder [Recovering/Resolving]
  - Dyspepsia [Recovering/Resolving]
  - Fluid intake reduced [Recovering/Resolving]

NARRATIVE: CASE EVENT DATE: 20180920
